FAERS Safety Report 4420570-7 (Version None)
Quarter: 2004Q3

REPORT INFORMATION
  Report Type: 
  Country: None (occurrence: None)
  Receive Date: 20040809
  Receipt Date: 20040401
  Transmission Date: 20050211
  Serious: Yes (Other)
  Sender: FDA-Public Use
  Company Number: US-GLAXOSMITHKLINE-A0505577A

PATIENT
  Sex: Male

DRUGS (3)
  1. PAXIL CR [Suspect]
     Dosage: 25MG PER DAY
     Route: 048
     Dates: start: 20030401
  2. MULTIVITAMIN [Concomitant]
  3. FISH OIL [Concomitant]

REACTIONS (1)
  - HEPATIC ENZYME INCREASED [None]
